FAERS Safety Report 4549903-8 (Version None)
Quarter: 2005Q1

REPORT INFORMATION
  Report Type: 
  Country: None (occurrence: None)
  Receive Date: 20041228
  Receipt Date: 20041110
  Transmission Date: 20050727
  Serious: No
  Sender: FDA-Public Use
  Company Number: WAES 0411USA02014

PATIENT
  Sex: Male

DRUGS (1)
  1. INJ INVANZ 1.0 DOSE [Suspect]
     Dosage: 1 DOSE/IV
     Route: 042
     Dates: start: 20041029

REACTIONS (1)
  - DIZZINESS [None]
